FAERS Safety Report 21831071 (Version 3)
Quarter: 2023Q1

REPORT INFORMATION
  Report Type: Spontaneous
  Country: US (occurrence: US)
  Receive Date: 20230106
  Receipt Date: 20230223
  Transmission Date: 20230417
  Serious: No
  Sender: FDA-Public Use
  Company Number: US-SAGE-2022SAGE000124

PATIENT
  Age: 17 Year
  Sex: Male

DRUGS (2)
  1. ZULRESSO [Suspect]
     Active Substance: BREXANOLONE
     Indication: New onset refractory status epilepticus
     Dosage: UNK
     Route: 042
     Dates: start: 20221229, end: 20230103
  2. ZULRESSO [Suspect]
     Active Substance: BREXANOLONE
     Indication: Febrile infection-related epilepsy syndrome

REACTIONS (3)
  - Off label use [Unknown]
  - Product use issue [Unknown]
  - Product use in unapproved indication [Unknown]

NARRATIVE: CASE EVENT DATE: 20221229
